FAERS Safety Report 25823030 (Version 1)
Quarter: 2025Q3

REPORT INFORMATION
  Report Type: Spontaneous
  Country: CN (occurrence: CN)
  Receive Date: 20250919
  Receipt Date: 20250919
  Transmission Date: 20251020
  Serious: Yes (Other)
  Sender: BAUSCH AND LOMB
  Company Number: CN-BAUSCH-BH-2025-017622

PATIENT
  Age: 41 Year
  Sex: Female

DRUGS (10)
  1. MINOCYCLINE [Suspect]
     Active Substance: MINOCYCLINE HYDROCHLORIDE
     Indication: Mycobacterial infection
     Route: 048
     Dates: start: 2023
  2. VITAMIN B6 [Concomitant]
     Active Substance: PYRIDOXINE HYDROCHLORIDE
     Indication: Mycobacterial infection
     Route: 042
     Dates: start: 202307
  3. VITAMIN B6 [Concomitant]
     Active Substance: PYRIDOXINE HYDROCHLORIDE
     Route: 048
     Dates: start: 2023
  4. IMIPENEM [Concomitant]
     Active Substance: IMIPENEM
     Indication: Mycobacterial infection
     Dates: start: 20230629
  5. IMIPENEM [Concomitant]
     Active Substance: IMIPENEM
     Dates: start: 2023
  6. LINEZOLID [Concomitant]
     Active Substance: LINEZOLID
     Indication: Evidence based treatment
     Dosage: GTT
     Route: 042
     Dates: start: 202306
  7. LINEZOLID [Concomitant]
     Active Substance: LINEZOLID
     Indication: Mycobacterial infection
     Dosage: GTT
     Route: 042
     Dates: start: 20230629
  8. LINEZOLID [Concomitant]
     Active Substance: LINEZOLID
     Route: 048
     Dates: start: 2023
  9. AMIKACIN [Concomitant]
     Active Substance: AMIKACIN
     Indication: Mycobacterial infection
     Route: 048
     Dates: start: 2023, end: 2023
  10. AMIKACIN [Concomitant]
     Active Substance: AMIKACIN
     Route: 048
     Dates: start: 20230629

REACTIONS (1)
  - Ototoxicity [Unknown]

NARRATIVE: CASE EVENT DATE: 20230101
